FAERS Safety Report 20428397 (Version 1)
Quarter: 2022Q1

REPORT INFORMATION
  Report Type: Spontaneous
  Country: FR (occurrence: FR)
  Receive Date: 20220204
  Receipt Date: 20220204
  Transmission Date: 20220423
  Serious: Yes (Other)
  Sender: FDA-Public Use
  Company Number: FR-AFSSAPS-NT20201255

PATIENT
  Age: 54 Year
  Sex: Female

DRUGS (14)
  1. FOLIC ACID [Suspect]
     Active Substance: FOLIC ACID
     Indication: Vitamin supplementation
     Dosage: 5 MILLIGRAM, ONCE A DAY
     Route: 048
  2. LACTULOSE [Suspect]
     Active Substance: LACTULOSE
     Indication: Constipation
     Dosage: UNK (MORNING NOON AND EVENING)
     Route: 048
  3. LANSOPRAZOLE [Suspect]
     Active Substance: LANSOPRAZOLE
     Indication: Prophylaxis against gastrointestinal ulcer
     Dosage: 30 MILLIGRAM, ONCE A DAY
     Route: 048
  4. POLYETHYLENE GLYCOLS [Suspect]
     Active Substance: POLYETHYLENE GLYCOLS
     Indication: Constipation
     Dosage: 10 GRAM, ONCE A DAY
     Route: 048
  5. ACETAMINOPHEN [Suspect]
     Active Substance: ACETAMINOPHEN
     Indication: Pain
     Dosage: IF NECESSARY
     Route: 048
  6. PREDNISOLONE [Suspect]
     Active Substance: PREDNISOLONE
     Indication: Breast cancer
     Dosage: 20 MILLIGRAM, ONCE A DAY (DECREASING)
     Route: 048
  7. ERYTHROPOIETIN [Suspect]
     Active Substance: ERYTHROPOIETIN
     Indication: Anaemia prophylaxis
     Dosage: 30000 INTERNATIONAL UNIT, EVERY WEEK
     Route: 058
  8. TRANEXAMIC ACID [Suspect]
     Active Substance: TRANEXAMIC ACID
     Indication: Gastrointestinal haemorrhage
     Dosage: 2 GRAM, ONCE A DAY
     Route: 048
  9. HALAVEN [Suspect]
     Active Substance: ERIBULIN MESYLATE
     Indication: Breast cancer
     Dosage: UNK UNK, CYCLICAL (D1 AND D8 ON 21-DAY CYCLES)
     Route: 042
     Dates: start: 20200731
  10. HALAVEN [Suspect]
     Active Substance: ERIBULIN MESYLATE
     Indication: Invasive ductal breast carcinoma
  11. LOVENOX [Suspect]
     Active Substance: ENOXAPARIN SODIUM
     Indication: Thrombosis prophylaxis
     Dosage: 4000 INTERNATIONAL UNIT, ONCE A DAY
     Route: 058
     Dates: start: 20200808
  12. METOCLOPRAMIDE [Suspect]
     Active Substance: METOCLOPRAMIDE
     Indication: Prophylaxis of nausea and vomiting
     Dosage: 3 DOSAGE FORM, AS NECESSARY
     Route: 048
  13. FILGRASTIM [Suspect]
     Active Substance: FILGRASTIM
     Indication: Neutropenia
     Dosage: 30 MEGA-INTERNATIONAL UNIT (J2 AND J7)
     Route: 058
     Dates: start: 20200801
  14. POLYETHYLENE GLYCOL [Suspect]
     Active Substance: POLYETHYLENE GLYCOL
     Indication: Constipation
     Dosage: 10 GRAM, ONCE A DAY
     Route: 048

REACTIONS (1)
  - Thrombocytopenia [Not Recovered/Not Resolved]

NARRATIVE: CASE EVENT DATE: 20200810
